APPROVED DRUG PRODUCT: ESZOPICLONE
Active Ingredient: ESZOPICLONE
Strength: 3MG
Dosage Form/Route: TABLET;ORAL
Application: A202929 | Product #003 | TE Code: AB
Applicant: MACLEODS PHARMACEUTICALS LTD
Approved: Jan 30, 2015 | RLD: No | RS: No | Type: RX